FAERS Safety Report 7350100-1 (Version None)
Quarter: 2011Q1

REPORT INFORMATION
  Report Type: 
  Country: None (occurrence: None)
  Receive Date: 20110314
  Receipt Date: 20101119
  Transmission Date: 20110831
  Serious: Yes (Other)
  Sender: FDA-Public Use
  Company Number: A0897032A

PATIENT
  Age: 47 Year
  Sex: Male

DRUGS (1)
  1. AVANDIA [Suspect]
     Dosage: 4MG TWICE PER DAY
     Route: 048
     Dates: start: 20030101, end: 20050425

REACTIONS (6)
  - INJURY [None]
  - HYPERTENSION [None]
  - DYSPNOEA [None]
  - HYPOGLYCAEMIA [None]
  - CARDIOVASCULAR DISORDER [None]
  - CHEST PAIN [None]
